FAERS Safety Report 8601311-6 (Version None)
Quarter: 2012Q3

REPORT INFORMATION
  Report Type: 
  Country: None (occurrence: None)
  Receive Date: 20120806
  Receipt Date: 20120806
  Transmission Date: 20120928
  Serious: Yes (Other)
  Sender: FDA-Public Use
  Company Number: None

PATIENT
  Age: 48 Year
  Sex: Female
  Weight: 87.5442 kg

DRUGS (2)
  1. MELOXICAM [Suspect]
     Indication: BACK PAIN
     Dosage: ONE TABLET BY MOUTH AS NEEDED PO
     Route: 048
     Dates: start: 20120719, end: 20120802
  2. DEXAMETHASONE [Suspect]
     Indication: BACK PAIN
     Dosage: 4 BREAKFAST/4 AFTER EVENING TWICE DAILY PO
     Route: 048
     Dates: start: 20120721, end: 20120802

REACTIONS (2)
  - PARAESTHESIA [None]
  - HYPOAESTHESIA [None]
